FAERS Safety Report 6914249-7 (Version None)
Quarter: 2010Q3

REPORT INFORMATION
  Report Type: 
  Country: None (occurrence: None)
  Receive Date: 20100809
  Receipt Date: 20100730
  Transmission Date: 20110219
  Serious: Yes (Other)
  Sender: FDA-Public Use
  Company Number: A0873219A

PATIENT
  Age: 61 Year
  Sex: Male

DRUGS (4)
  1. ADVAIR DISKUS 100/50 [Suspect]
     Indication: ASTHMA
     Route: 055
  2. ALBUTEROL [Concomitant]
  3. FLONASE [Concomitant]
  4. LORATADINE [Concomitant]

REACTIONS (5)
  - ASTHENIA [None]
  - ASTHMA [None]
  - DYSPNOEA [None]
  - EUPHORIC MOOD [None]
  - THERAPEUTIC RESPONSE UNEXPECTED [None]
